FAERS Safety Report 9529827 (Version 2)
Quarter: 2013Q4

REPORT INFORMATION
  Report Type: Report from Study
  Country: BR (occurrence: BR)
  Receive Date: 20130917
  Receipt Date: 20131017
  Transmission Date: 20140711
  Serious: Yes (Other)
  Sender: FDA-Public Use
  Company Number: PHHY2013BR103082

PATIENT
  Age: 60 Year
  Sex: Female

DRUGS (4)
  1. GALVUS MET [Suspect]
     Indication: DIABETES MELLITUS
     Dosage: 1 DF (850/50MG), TID (1 IN BREAKFAST, 1 AT LUNCH AND 1 AT AFTERNOON SNACK OR DINNER)
     Route: 048
  2. DIOVAN AMLO FIX [Suspect]
     Indication: HYPERTENSION
     Dosage: 1 DF (320/5MG), QD (IN MORNING)
     Route: 048
  3. CALCIUM + VITAMIN D                /01483701/ [Concomitant]
     Indication: PROPHYLAXIS
     Dosage: 500 MG, QD (AT LUNCH)
     Route: 048
  4. LINSEED OIL [Concomitant]
     Dosage: 1 DF, DAILY
     Route: 048

REACTIONS (11)
  - Cataract [Recovered/Resolved]
  - Eyelid ptosis [Recovered/Resolved]
  - Rectal polyp [Not Recovered/Not Resolved]
  - Haematochezia [Not Recovered/Not Resolved]
  - Breast oedema [Not Recovered/Not Resolved]
  - Eyelid oedema [Not Recovered/Not Resolved]
  - Eye colour change [Recovered/Resolved]
  - Pollakiuria [Recovering/Resolving]
  - Visual impairment [Recovered/Resolved]
  - Blood disorder [Recovering/Resolving]
  - Vitamin D deficiency [Recovering/Resolving]
